FAERS Safety Report 19835027 (Version 7)
Quarter: 2022Q1

REPORT INFORMATION
  Report Type: Report from Study
  Country: US (occurrence: US)
  Receive Date: 20210916
  Receipt Date: 20220206
  Transmission Date: 20220423
  Serious: Yes (Other)
  Sender: FDA-Public Use
  Company Number: NVSC2021US202500

PATIENT
  Sex: Female

DRUGS (3)
  1. ENTRESTO [Suspect]
     Active Substance: SACUBITRIL\VALSARTAN
     Indication: Product used for unknown indication
     Dosage: 50 MG (24/26 MG), BID
     Route: 065
  2. CARVEDILOL [Suspect]
     Active Substance: CARVEDILOL
     Indication: Product used for unknown indication
     Dosage: UNK
     Route: 065
  3. POTASSIUM [Concomitant]
     Active Substance: POTASSIUM
     Indication: Product used for unknown indication
     Dosage: UNK
     Route: 065

REACTIONS (15)
  - Cardiac failure [Unknown]
  - Sleep apnoea syndrome [Unknown]
  - Apnoea [Unknown]
  - Gastrooesophageal reflux disease [Unknown]
  - Chest pain [Recovered/Resolved]
  - Arthropathy [Unknown]
  - Exostosis [Unknown]
  - Muscular weakness [Recovered/Resolved]
  - Back pain [Unknown]
  - Intervertebral disc protrusion [Unknown]
  - Pain [Unknown]
  - Nervousness [Unknown]
  - Fatigue [Unknown]
  - Hypotension [Unknown]
  - Inappropriate schedule of product administration [Unknown]
